FAERS Safety Report 7797866-4 (Version None)
Quarter: 2011Q4

REPORT INFORMATION
  Report Type: 
  Country: None (occurrence: None)
  Receive Date: 20111005
  Receipt Date: 20110926
  Transmission Date: 20120403
  Serious: Yes (Hospitalization, Other)
  Sender: FDA-Public Use
  Company Number: US-MERCK-1107USA02329

PATIENT
  Age: 66 Year
  Sex: Female

DRUGS (4)
  1. CRESTOR [Concomitant]
     Indication: BLOOD CHOLESTEROL
     Route: 065
     Dates: start: 20050101
  2. TEKTURNA [Concomitant]
     Indication: HYPERTENSION
     Route: 065
     Dates: start: 20050101
  3. FOSAMAX PLUS D [Suspect]
     Indication: OSTEOPOROSIS
     Route: 048
     Dates: start: 20050401, end: 20090701
  4. FOSAMAX [Suspect]
     Indication: OSTEOPOROSIS
     Route: 048
     Dates: start: 20050101, end: 20090701

REACTIONS (9)
  - FALL [None]
  - BLOOD CALCIUM DECREASED [None]
  - RENAL CANCER [None]
  - INCORRECT DOSE ADMINISTERED [None]
  - OSTEOPOROSIS [None]
  - ABDOMINAL DISCOMFORT [None]
  - DIABETES MELLITUS [None]
  - FEMUR FRACTURE [None]
  - VITAMIN D DEFICIENCY [None]
